FAERS Safety Report 10553106 (Version 1)
Quarter: 2014Q4

REPORT INFORMATION
  Report Type: Spontaneous
  Country: US (occurrence: US)
  Receive Date: 20141030
  Receipt Date: 20141030
  Transmission Date: 20150529
  Serious: Yes (Other)
  Sender: FDA-Public Use
  Company Number: PHHY2014US138175

PATIENT
  Age: 50 Year
  Sex: Female

DRUGS (4)
  1. PREDNISONE. [Suspect]
     Active Substance: PREDNISONE
     Dosage: 5 MG, PER WEEK
     Route: 065
  2. PREDNISONE. [Suspect]
     Active Substance: PREDNISONE
     Dosage: 10 MG, QD
     Route: 065
  3. PREDNISONE. [Suspect]
     Active Substance: PREDNISONE
     Dosage: 10 MG, QD
     Route: 065
  4. PREDNISONE. [Suspect]
     Active Substance: PREDNISONE
     Indication: FOCAL SEGMENTAL GLOMERULOSCLEROSIS
     Dosage: 70 MG, QD
     Route: 065

REACTIONS (12)
  - Mania [Unknown]
  - Thinking abnormal [Unknown]
  - Cognitive disorder [Not Recovered/Not Resolved]
  - Drug ineffective [Unknown]
  - Impulse-control disorder [Unknown]
  - Insomnia [Unknown]
  - Feeling abnormal [Unknown]
  - Memory impairment [Not Recovered/Not Resolved]
  - Stress [Not Recovered/Not Resolved]
  - Anxiety [Unknown]
  - Depression [Unknown]
  - Amnesia [Not Recovered/Not Resolved]
